FAERS Safety Report 14920012 (Version 1)
Quarter: 2018Q2

REPORT INFORMATION
  Report Type: Spontaneous
  Country: US (occurrence: US)
  Receive Date: 20180502
  Receipt Date: 20180502
  Transmission Date: 20180711
  Serious: Yes (Hospitalization)
  Sender: FDA-Public Use
  Company Number: None

PATIENT
  Sex: Female

DRUGS (7)
  1. HYDROCO [Concomitant]
  2. VITAMIN D [Concomitant]
     Active Substance: CHOLECALCIFEROL
  3. LINEZOLID. [Concomitant]
     Active Substance: LINEZOLID
  4. AZIITHROMYCIN [Concomitant]
     Active Substance: AZITHROMYCIN
  5. NAPROXEN. [Concomitant]
     Active Substance: NAPROXEN
  6. EXJADE [Suspect]
     Active Substance: DEFERASIROX
     Indication: AUTOIMMUNE HAEMOLYTIC ANAEMIA
     Dosage: 500MG 4 TAB QD PO
     Route: 048
     Dates: start: 20160203
  7. TRINESSA [Concomitant]
     Active Substance: ETHINYL ESTRADIOL\NORGESTIMATE

REACTIONS (1)
  - Infection [None]
